FAERS Safety Report 22975896 (Version 3)
Quarter: 2024Q2

REPORT INFORMATION
  Report Type: Spontaneous
  Country: CA (occurrence: None)
  Receive Date: 20230925
  Receipt Date: 20240506
  Transmission Date: 20240715
  Serious: Yes (Other)
  Sender: FDA-Public Use
  Company Number: CA-ROCHE-3427201

PATIENT
  Age: 44 Year
  Sex: Female

DRUGS (4)
  1. RITUXIMAB [Suspect]
     Active Substance: RITUXIMAB
     Indication: Relapsing-remitting multiple sclerosis
     Dosage: 1 G
     Route: 041
  2. ACETAMINOPHEN [Concomitant]
     Active Substance: ACETAMINOPHEN
     Indication: Product used for unknown indication
     Route: 048
  3. DIPHENHYDRAMINE [Concomitant]
     Active Substance: DIPHENHYDRAMINE
     Route: 042
  4. METHYLPREDNISOLONE [Concomitant]
     Active Substance: METHYLPREDNISOLONE
     Route: 042

REACTIONS (11)
  - Blood pressure increased [Recovered/Resolved]
  - Body temperature decreased [Recovered/Resolved]
  - Ear pruritus [Recovered/Resolved]
  - Heart rate decreased [Recovered/Resolved]
  - Infection [Recovered/Resolved]
  - Pharyngeal paraesthesia [Recovered/Resolved]
  - Off label use [Unknown]
  - SARS-CoV-2 test positive [Recovered/Resolved]
  - Throat irritation [Recovered/Resolved]
  - White blood cell count increased [Recovered/Resolved]
  - Inappropriate schedule of product administration [Unknown]
